FAERS Safety Report 7671383-4 (Version None)
Quarter: 2011Q3

REPORT INFORMATION
  Report Type: 
  Country: None (occurrence: None)
  Receive Date: 20110809
  Receipt Date: 20110803
  Transmission Date: 20111222
  Serious: Yes (Other)
  Sender: FDA-Public Use
  Company Number: US-BAYER-2011-068585

PATIENT
  Age: 60 Year
  Sex: Female

DRUGS (7)
  1. MORPHINE [Concomitant]
     Dosage: 2 MG
  2. CINACALCET [Concomitant]
     Dosage: 60 MG PO DAILY
     Route: 048
  3. CIPROFLOXACIN [Suspect]
  4. CEFOXITIN [Suspect]
  5. METOCLOPRAMIDE [Concomitant]
     Dosage: 10 MG
     Route: 042
  6. FENTANYL [Concomitant]
     Dosage: 50 MCG
  7. METRONIDAZOLE [Concomitant]
     Dosage: 500 MG

REACTIONS (13)
  - MOBILITY DECREASED [None]
  - CATATONIA [None]
  - SPEECH DISORDER [None]
  - PERSEVERATION [None]
  - FEAR [None]
  - MUSCLE RIGIDITY [None]
  - WAXY FLEXIBILITY [None]
  - MUTISM [None]
  - STARING [None]
  - NEGATIVISM [None]
  - GRIMACING [None]
  - NEUROTOXICITY [None]
  - VERBIGERATION [None]
